FAERS Safety Report 25806964 (Version 1)
Quarter: 2025Q3

REPORT INFORMATION
  Report Type: Report from Study
  Country: US (occurrence: US)
  Receive Date: 20250916
  Receipt Date: 20250916
  Transmission Date: 20251021
  Serious: Yes (Other)
  Sender: ABBVIE
  Company Number: US-ABBVIE-6362835

PATIENT
  Age: 78 Year
  Sex: Female
  Weight: 56 kg

DRUGS (18)
  1. LINZESS [Suspect]
     Active Substance: LINACLOTIDE
     Indication: Product used for unknown indication
     Route: 048
  2. LINZESS [Suspect]
     Active Substance: LINACLOTIDE
     Indication: Product used for unknown indication
     Route: 048
  3. DILTIAZEM HYDROCHLORIDE [Concomitant]
     Active Substance: DILTIAZEM HYDROCHLORIDE
     Indication: Product used for unknown indication
     Route: 048
  4. METOPROLOL [Concomitant]
     Active Substance: METOPROLOL
     Indication: Product used for unknown indication
  5. FUROSEMIDE [Concomitant]
     Active Substance: FUROSEMIDE
     Indication: Product used for unknown indication
  6. APIXABAN [Concomitant]
     Active Substance: APIXABAN
     Indication: Product used for unknown indication
  7. LEVOTHYROXINE [Concomitant]
     Active Substance: LEVOTHYROXINE
     Indication: Product used for unknown indication
  8. ALBUTEROL [Concomitant]
     Active Substance: ALBUTEROL
     Indication: Product used for unknown indication
  9. AIRSUPRA [Concomitant]
     Active Substance: ALBUTEROL SULFATE\BUDESONIDE
     Indication: Product used for unknown indication
  10. IPRATROPIUM BROMIDE [Concomitant]
     Active Substance: IPRATROPIUM BROMIDE
     Indication: Product used for unknown indication
  11. TRAMADOL [Concomitant]
     Active Substance: TRAMADOL
     Indication: Product used for unknown indication
  12. DOCUSATE [Concomitant]
     Active Substance: DOCUSATE
     Indication: Product used for unknown indication
  13. MELATONIN [Concomitant]
     Active Substance: MELATONIN
     Indication: Product used for unknown indication
  14. Fiber psyllium [Concomitant]
     Indication: Product used for unknown indication
  15. PREDNISOLONE ACETATE [Concomitant]
     Active Substance: PREDNISOLONE ACETATE
     Indication: Product used for unknown indication
  16. LATANOPROST [Concomitant]
     Active Substance: LATANOPROST
     Indication: Product used for unknown indication
  17. MONTELUKAST SODIUM [Concomitant]
     Active Substance: MONTELUKAST SODIUM
     Indication: Product used for unknown indication
  18. LEVALBUTEROL [Concomitant]
     Active Substance: LEVALBUTEROL
     Indication: Product used for unknown indication

REACTIONS (19)
  - Breast angiosarcoma [Unknown]
  - Diarrhoea [Recovered/Resolved]
  - Dizziness [Unknown]
  - Asthma [Unknown]
  - Essential hypertension [Unknown]
  - Lymphoedema [Unknown]
  - Polyarthritis [Unknown]
  - Atrial fibrillation [Unknown]
  - Cardiac failure congestive [Unknown]
  - Bundle branch block left [Unknown]
  - Orthostatic hypotension [Unknown]
  - Electrolyte imbalance [Unknown]
  - Dehydration [Unknown]
  - Cataract [Unknown]
  - Peripheral nerve neurostimulation [Unknown]
  - Peripheral nerve neurostimulation [Unknown]
  - Knee arthroplasty [Unknown]
  - Hip arthroplasty [Unknown]
  - Bladder catheterisation [Unknown]

NARRATIVE: CASE EVENT DATE: 20150101
